FAERS Safety Report 12607452 (Version 1)
Quarter: 2016Q3

REPORT INFORMATION
  Report Type: Spontaneous
  Country: PE (occurrence: PE)
  Receive Date: 20160729
  Receipt Date: 20160729
  Transmission Date: 20161109
  Serious: Yes (Death)
  Sender: FDA-Public Use
  Company Number: PE-ASTRAZENECA-2016SE79515

PATIENT
  Age: 60 Year
  Sex: Female

DRUGS (1)
  1. BYETTA [Suspect]
     Active Substance: EXENATIDE
     Dosage: 10.0UG UNKNOWN
     Route: 058
     Dates: start: 20150310

REACTIONS (1)
  - Death [Fatal]

NARRATIVE: CASE EVENT DATE: 20160522
